FAERS Safety Report 16308730 (Version 2)
Quarter: 2024Q2

REPORT INFORMATION
  Report Type: Report from Study
  Country: KR (occurrence: GB)
  Receive Date: 20190514
  Receipt Date: 20240427
  Transmission Date: 20240717
  Serious: Yes (Other)
  Sender: FDA-Public Use
  Company Number: GB-TEVA-2019-GB-1050159

PATIENT
  Age: 43 Year
  Sex: Female

DRUGS (24)
  1. AJOVY [Suspect]
     Active Substance: FREMANEZUMAB-VFRM
     Indication: Product used for unknown indication
     Route: 065
     Dates: start: 20221207, end: 20230109
  2. RISEDRONIC ACID [Suspect]
     Active Substance: RISEDRONIC ACID
     Indication: Bone loss
     Route: 048
  3. ANASTROZOLE [Suspect]
     Active Substance: ANASTROZOLE
     Indication: Prophylaxis
     Route: 065
  4. FROVATRIPTAN SUCCINATE [Concomitant]
     Active Substance: FROVATRIPTAN SUCCINATE
     Indication: Migraine
     Route: 048
     Dates: start: 20140413
  5. FROVATRIPTAN SUCCINATE [Concomitant]
     Active Substance: FROVATRIPTAN SUCCINATE
     Indication: Migraine
     Route: 048
     Dates: start: 20221221, end: 20221222
  6. FROVATRIPTAN SUCCINATE [Concomitant]
     Active Substance: FROVATRIPTAN SUCCINATE
     Indication: Migraine
     Route: 048
     Dates: start: 20230115, end: 20230115
  7. FROVATRIPTAN SUCCINATE [Concomitant]
     Active Substance: FROVATRIPTAN SUCCINATE
     Indication: Migraine
     Route: 048
     Dates: start: 20230119, end: 20230120
  8. FROVATRIPTAN SUCCINATE [Concomitant]
     Active Substance: FROVATRIPTAN SUCCINATE
     Indication: Migraine
     Route: 048
     Dates: start: 20230122, end: 20230122
  9. FROVATRIPTAN SUCCINATE [Concomitant]
     Active Substance: FROVATRIPTAN SUCCINATE
     Indication: Migraine
     Route: 048
     Dates: start: 20230125, end: 20230125
  10. FROVATRIPTAN SUCCINATE [Concomitant]
     Active Substance: FROVATRIPTAN SUCCINATE
     Indication: Migraine
     Route: 048
     Dates: start: 20230210, end: 20230211
  11. Naxen F [Concomitant]
     Indication: Migraine
     Route: 048
     Dates: start: 20130108
  12. Naxen F [Concomitant]
     Indication: Migraine
     Route: 048
     Dates: start: 20221221, end: 20221222
  13. Naxen F [Concomitant]
     Indication: Migraine
     Route: 048
     Dates: start: 20230115, end: 20230115
  14. Naxen F [Concomitant]
     Indication: Migraine
     Route: 048
     Dates: start: 20230119, end: 20230120
  15. Naxen F [Concomitant]
     Indication: Migraine
     Route: 048
     Dates: start: 20230122, end: 20230122
  16. Naxen F [Concomitant]
     Indication: Migraine
     Route: 048
     Dates: start: 20230125, end: 20230125
  17. Naxen F [Concomitant]
     Indication: Migraine
     Route: 048
     Dates: start: 20230210, end: 20230211
  18. METOCLOPRAMIDE HYDROCHLORIDE [Concomitant]
     Active Substance: METOCLOPRAMIDE HYDROCHLORIDE
     Indication: Gastrointestinal disorder prophylaxis
     Route: 048
     Dates: start: 20130108
  19. METOCLOPRAMIDE HYDROCHLORIDE [Concomitant]
     Active Substance: METOCLOPRAMIDE HYDROCHLORIDE
     Indication: Gastrointestinal disorder prophylaxis
     Route: 048
     Dates: start: 20221221, end: 20221222
  20. METOCLOPRAMIDE HYDROCHLORIDE [Concomitant]
     Active Substance: METOCLOPRAMIDE HYDROCHLORIDE
     Indication: Gastrointestinal disorder prophylaxis
     Route: 048
     Dates: start: 20230115, end: 20230115
  21. METOCLOPRAMIDE HYDROCHLORIDE [Concomitant]
     Active Substance: METOCLOPRAMIDE HYDROCHLORIDE
     Indication: Gastrointestinal disorder prophylaxis
     Route: 048
     Dates: start: 20230119, end: 20230120
  22. METOCLOPRAMIDE HYDROCHLORIDE [Concomitant]
     Active Substance: METOCLOPRAMIDE HYDROCHLORIDE
     Indication: Gastrointestinal disorder prophylaxis
     Route: 048
     Dates: start: 20230122, end: 20230122
  23. METOCLOPRAMIDE HYDROCHLORIDE [Concomitant]
     Active Substance: METOCLOPRAMIDE HYDROCHLORIDE
     Indication: Gastrointestinal disorder prophylaxis
     Route: 048
     Dates: start: 20230125, end: 20230125
  24. METOCLOPRAMIDE HYDROCHLORIDE [Concomitant]
     Active Substance: METOCLOPRAMIDE HYDROCHLORIDE
     Indication: Gastrointestinal disorder prophylaxis
     Route: 048
     Dates: start: 20230210, end: 20230211

REACTIONS (2)
  - Fracture [Unknown]
  - Drug ineffective [Unknown]

NARRATIVE: CASE EVENT DATE: 20221221
